FAERS Safety Report 12912601 (Version 2)
Quarter: 2016Q4

REPORT INFORMATION
  Report Type: Spontaneous
  Country: JP (occurrence: JP)
  Receive Date: 20161104
  Receipt Date: 20161121
  Transmission Date: 20170207
  Serious: No
  Sender: FDA-Public Use
  Company Number: JP-009507513-1610JPN013493

PATIENT
  Age: 9 Decade
  Sex: Female

DRUGS (4)
  1. EURODIN (ESTAZOLAM) [Concomitant]
     Indication: INSOMNIA
     Dosage: 2 MG, QD
     Route: 048
  2. NEXIUM [Concomitant]
     Active Substance: ESOMEPRAZOLE MAGNESIUM
     Indication: GASTROINTESTINAL DISORDER
     Dosage: DAILY DOSAGE UNKNOWN
     Route: 048
     Dates: start: 201406
  3. BELSOMRA [Suspect]
     Active Substance: SUVOREXANT
     Indication: INSOMNIA
     Dosage: 15 MG, ONCE
     Route: 048
     Dates: start: 20160921, end: 20160921
  4. THYRADIN [Concomitant]
     Active Substance: LEVOTHYROXINE
     Indication: HYPOTHYROIDISM
     Dosage: 75 MICROGRAM, UNK
     Route: 048

REACTIONS (2)
  - Nausea [Recovered/Resolved]
  - Headache [Recovered/Resolved]

NARRATIVE: CASE EVENT DATE: 20160921
